FAERS Safety Report 4490782-5 (Version None)
Quarter: 2004Q4

REPORT INFORMATION
  Report Type: 
  Country: None (occurrence: None)
  Receive Date: 20041026
  Receipt Date: 20041013
  Transmission Date: 20050328
  Serious: Yes (Hospitalization)
  Sender: FDA-Public Use
  Company Number: WAES 0409CHL00003

PATIENT
  Age: 63 Year
  Sex: Male

DRUGS (7)
  1. VIOXX [Suspect]
     Indication: NEOPLASM PROPHYLAXIS
     Dosage: 25 MG DAILY PO
     Route: 048
     Dates: start: 20040609, end: 20040902
  2. CINNARIZINE [Concomitant]
  3. CLONAZEPAM [Concomitant]
  4. DORZOLAMIDE HYDROCHLORIDE [Concomitant]
  5. TAMSULOSIN HYDROCHLORIDE [Concomitant]
  6. TIMOLOL MALEATE [Concomitant]
  7. ZOPICLONE [Concomitant]

REACTIONS (3)
  - ANXIETY [None]
  - AORTIC DISORDER [None]
  - MYOCARDIAL ISCHAEMIA [None]
